FAERS Safety Report 5151720-5 (Version None)
Quarter: 2006Q4

REPORT INFORMATION
  Report Type: 
  Country: None (occurrence: None)
  Receive Date: 20061107
  Receipt Date: 20061026
  Transmission Date: 20070319
  Serious: Yes (Hospitalization)
  Sender: FDA-Public Use
  Company Number: THYM-11111

PATIENT
  Age: 60 Year
  Sex: Male

DRUGS (13)
  1. THYMOGLOBULIN [Suspect]
     Indication: RENAL TRANSPLANT
     Dosage: 100 MG QD IV
     Route: 042
     Dates: start: 20060218, end: 20060220
  2. VALGANCICLOVIR HCL [Concomitant]
  3. LIPITOR [Concomitant]
  4. BACTRIM [Concomitant]
  5. RANITIDINE [Concomitant]
  6. TACROLIMUS [Concomitant]
  7. NIFEDIPINE [Concomitant]
  8. LOPRESSOR [Concomitant]
  9. LOSARTAN POSTASSIUM [Concomitant]
  10. ALENDRONATE SODIUM [Concomitant]
  11. CINACALCET [Concomitant]
  12. PREDNISONE TAB [Concomitant]
  13. MYCOPHENOLATE MOFETIL [Concomitant]

REACTIONS (5)
  - CHILLS [None]
  - CYTOMEGALOVIRUS INFECTION [None]
  - DIARRHOEA [None]
  - NAUSEA [None]
  - VOMITING [None]
